FAERS Safety Report 12316690 (Version 1)
Quarter: 2016Q2

REPORT INFORMATION
  Report Type: Report from Study
  Country: VE (occurrence: VE)
  Receive Date: 20160429
  Receipt Date: 20160429
  Transmission Date: 20160815
  Serious: Yes (Other)
  Sender: FDA-Public Use
  Company Number: VE-ABBVIE-16K-178-1616333-00

PATIENT
  Age: 48 Year
  Sex: Male
  Weight: 86 kg

DRUGS (2)
  1. ISONIAZIDE [Concomitant]
     Active Substance: ISONIAZID
     Indication: PRODUCT USED FOR UNKNOWN INDICATION
  2. HUMIRA [Suspect]
     Active Substance: ADALIMUMAB
     Indication: PSORIATIC ARTHROPATHY
     Route: 058
     Dates: start: 20150520, end: 20160115

REACTIONS (2)
  - Limb discomfort [Not Recovered/Not Resolved]
  - Tuberculin test positive [Not Recovered/Not Resolved]

NARRATIVE: CASE EVENT DATE: 201512
